FAERS Safety Report 10291059 (Version 1)
Quarter: 2014Q3

REPORT INFORMATION
  Report Type: Spontaneous
  Country: SG (occurrence: None)
  Receive Date: 20140708
  Receipt Date: 20140708
  Transmission Date: 20150326
  Serious: Yes (Other)
  Sender: FDA-Public Use
  Company Number: 2014JUB00039

PATIENT
  Age: 53 Year
  Sex: Female

DRUGS (1)
  1. ALENDRONATE (ALENDRONIC ACID) UNKNOWN [Suspect]
     Active Substance: ALENDRONIC ACID
     Dates: end: 200612

REACTIONS (3)
  - Device failure [None]
  - Callus formation delayed [None]
  - Femur fracture [None]

NARRATIVE: CASE EVENT DATE: 200612
